FAERS Safety Report 6354594-X (Version None)
Quarter: 2009Q3

REPORT INFORMATION
  Report Type: 
  Country: None (occurrence: None)
  Receive Date: 20090909
  Receipt Date: 20090901
  Transmission Date: 20100115
  Serious: Yes (Other)
  Sender: FDA-Public Use
  Company Number: CHPA2009US18107

PATIENT
  Age: 60 Year
  Sex: Female

DRUGS (3)
  1. NICOTINE [Suspect]
     Indication: SMOKING CESSATION THERAPY
     Dosage: 7 MG, QD TRANSDERMAL
     Route: 062
  2. NICOTINE [Suspect]
  3. REGIMEN #3 PRIVATE LABEL (NCH) 21 MG, QD, TRANSDERMAL [Suspect]

REACTIONS (1)
  - HERNIA [None]
